FAERS Safety Report 26008476 (Version 1)
Quarter: 2025Q4

REPORT INFORMATION
  Report Type: Spontaneous
  Country: US (occurrence: US)
  Receive Date: 20251106
  Receipt Date: 20251106
  Transmission Date: 20260118
  Serious: No
  Sender: SANOFI AVENTIS
  Company Number: US-SA-2025SA326357

PATIENT
  Age: 74 Year
  Sex: Female

DRUGS (16)
  1. DUPIXENT [Suspect]
     Active Substance: DUPILUMAB
     Indication: Dermatitis
     Dosage: 600 MG, 1X
     Route: 058
     Dates: start: 202510, end: 202510
  2. METOPROLOL [Concomitant]
     Active Substance: METOPROLOL
  3. LOSARTAN POTASSIUM [Concomitant]
     Active Substance: LOSARTAN POTASSIUM
  4. PAXLOVID [Concomitant]
     Active Substance: NIRMATRELVIR\RITONAVIR
     Dosage: 30 TBP 20 X 150
  5. VITAMIN C [Concomitant]
     Active Substance: ASCORBIC ACID
  6. ATORVASTATIN [Concomitant]
     Active Substance: ATORVASTATIN
  7. ADVAIR HFA [Concomitant]
     Active Substance: FLUTICASONE PROPIONATE\SALMETEROL XINAFOATE
  8. HYDROXYCHLOROQUINE [Concomitant]
     Active Substance: HYDROXYCHLOROQUINE
  9. BUPROPION [Concomitant]
     Active Substance: BUPROPION
  10. METHOTREXATE [Concomitant]
     Active Substance: METHOTREXATE
  11. AMLODIPINE BESYLATE [Concomitant]
     Active Substance: AMLODIPINE BESYLATE
  12. LEVOTHYROXINE [Concomitant]
     Active Substance: LEVOTHYROXINE
  13. TACROLIMUS [Concomitant]
     Active Substance: TACROLIMUS
  14. TRAZODONE HCL [Concomitant]
     Active Substance: TRAZODONE HYDROCHLORIDE
  15. TYLENOL [Concomitant]
     Active Substance: ACETAMINOPHEN
  16. HAIR/SKIN NAILS [Concomitant]

REACTIONS (2)
  - Pruritus [Recovered/Resolved]
  - Product use in unapproved indication [Unknown]

NARRATIVE: CASE EVENT DATE: 20250101
